FAERS Safety Report 7751360-5 (Version None)
Quarter: 2011Q3

REPORT INFORMATION
  Report Type: 
  Country: None (occurrence: None)
  Receive Date: 20110914
  Receipt Date: 20110902
  Transmission Date: 20111222
  Serious: Yes (Hospitalization)
  Sender: FDA-Public Use
  Company Number: JP-CELGENEUS-087-CCAZA-11090656

PATIENT
  Age: 79 Year
  Sex: Male

DRUGS (1)
  1. AZACITIDINE [Suspect]
     Dosage: 75 MILLIGRAM/SQ. METER
     Route: 041
     Dates: start: 20110824, end: 20110826

REACTIONS (1)
  - ASCITES [None]
